FAERS Safety Report 7478251-1 (Version None)
Quarter: 2011Q2

REPORT INFORMATION
  Report Type: 
  Country: None (occurrence: None)
  Receive Date: 20110513
  Receipt Date: 20110511
  Transmission Date: 20111010
  Serious: Yes (Life-Threatening, Hospitalization)
  Sender: FDA-Public Use
  Company Number: PHFR2011GB03013

PATIENT
  Age: 55 Year
  Sex: Male

DRUGS (3)
  1. CLOZAPINE [Suspect]
     Indication: SCHIZOPHRENIA
     Dates: start: 20000101, end: 20060101
  2. CLOZAPINE [Suspect]
     Dates: start: 20070101, end: 20101119
  3. AMISULPRIDE [Concomitant]

REACTIONS (7)
  - MULTI-ORGAN FAILURE [None]
  - LEFT VENTRICULAR DYSFUNCTION [None]
  - PNEUMONIA [None]
  - PSYCHOTIC DISORDER [None]
  - CARDIOMYOPATHY [None]
  - LOWER RESPIRATORY TRACT INFECTION [None]
  - CARDIOGENIC SHOCK [None]
